FAERS Safety Report 6148703-5 (Version None)
Quarter: 2009Q2

REPORT INFORMATION
  Report Type: 
  Country: None (occurrence: None)
  Receive Date: 20090406
  Receipt Date: 20090406
  Transmission Date: 20091009
  Serious: Yes (Life-Threatening)
  Sender: FDA-Public Use
  Company Number: None

PATIENT
  Age: 54 Year
  Sex: Male
  Weight: 119.4 kg

DRUGS (1)
  1. XIGRIS [Suspect]
     Indication: SEPSIS
     Dosage: 13.8 ML/HR IV
     Route: 042
     Dates: start: 20081019, end: 20081023

REACTIONS (15)
  - ATRIAL FIBRILLATION [None]
  - BLOOD CULTURE POSITIVE [None]
  - BRAIN OEDEMA [None]
  - CEREBRAL ISCHAEMIA [None]
  - HEPATIC CIRRHOSIS [None]
  - HYPOTENSION [None]
  - MOVEMENT DISORDER [None]
  - PUPILS UNEQUAL [None]
  - RESPIRATORY DISTRESS [None]
  - STREPTOCOCCAL INFECTION [None]
  - SUBARACHNOID HAEMORRHAGE [None]
  - SUBDURAL HAEMORRHAGE [None]
  - SUPRAVENTRICULAR EXTRASYSTOLES [None]
  - SUPRAVENTRICULAR TACHYCARDIA [None]
  - VENTRICULAR EXTRASYSTOLES [None]
